FAERS Safety Report 18618419 (Version 6)
Quarter: 2022Q4

REPORT INFORMATION
  Report Type: Spontaneous
  Country: FR (occurrence: FR)
  Receive Date: 20201215
  Receipt Date: 20221019
  Transmission Date: 20230113
  Serious: Yes (Death, Other)
  Sender: FDA-Public Use
  Company Number: FR-RECORDATI-2020004999

PATIENT
  Age: 43 Year
  Sex: Male

DRUGS (3)
  1. LYRICA [Interacting]
     Active Substance: PREGABALIN
     Dosage: UNK
     Route: 065
  2. METHADONE HYDROCHLORIDE [Interacting]
     Active Substance: METHADONE HYDROCHLORIDE
     Dosage: UNK
     Route: 065
  3. CLONAZEPAM [Suspect]
     Active Substance: CLONAZEPAM
     Dosage: UNK; 11 TABLETS
     Route: 065

REACTIONS (11)
  - Overdose [Fatal]
  - Asphyxia [Fatal]
  - Visceral congestion [Fatal]
  - Drug abuse [Fatal]
  - Respiratory depression [Fatal]
  - Drug interaction [Fatal]
  - Intentional overdose [Fatal]
  - Toxicity to various agents [Fatal]
  - Substance abuse [Fatal]
  - Pulmonary oedema [Fatal]
  - Drug level above therapeutic [Fatal]
